FAERS Safety Report 24711610 (Version 1)
Quarter: 2024Q4

REPORT INFORMATION
  Report Type: Spontaneous
  Country: US (occurrence: US)
  Receive Date: 20241209
  Receipt Date: 20241209
  Transmission Date: 20250114
  Serious: No
  Sender: ALEXION PHARMACEUTICALS
  Company Number: US-AstraZeneca-CH-00723099AP

PATIENT

DRUGS (4)
  1. BYETTA [Suspect]
     Active Substance: EXENATIDE
     Route: 065
  2. BYETTA [Suspect]
     Active Substance: EXENATIDE
     Route: 065
  3. BYETTA [Suspect]
     Active Substance: EXENATIDE
     Route: 065
  4. BYETTA [Suspect]
     Active Substance: EXENATIDE
     Route: 065

REACTIONS (7)
  - Malaise [Unknown]
  - Fatigue [Unknown]
  - Flatulence [Unknown]
  - Device issue [Unknown]
  - Device use error [Unknown]
  - Adverse event [Unknown]
  - Adverse drug reaction [Recovered/Resolved]
